FAERS Safety Report 6067312-X (Version None)
Quarter: 2009Q1

REPORT INFORMATION
  Report Type: 
  Country: None (occurrence: None)
  Receive Date: 20090205
  Receipt Date: 20090121
  Transmission Date: 20090719
  Serious: Yes (Hospitalization)
  Sender: FDA-Public Use
  Company Number: JP-BRISTOL-MYERS SQUIBB COMPANY-14445084

PATIENT
  Age: 57 Year
  Sex: Male

DRUGS (3)
  1. STOCRIN CAPS [Suspect]
     Indication: HIV INFECTION
     Route: 048
     Dates: start: 20030124
  2. TRUVADA [Suspect]
     Indication: HIV INFECTION
     Dosage: 1 DOSAGE FORM = 1 TAB
     Route: 048
     Dates: start: 20060408
  3. PREDNISOLONE [Suspect]
     Indication: MYASTHENIA GRAVIS
     Dosage: 1 DOSAGE FORM = 25-50MG TABS
     Route: 048
     Dates: start: 20070921

REACTIONS (2)
  - DIABETES MELLITUS [None]
  - MYASTHENIA GRAVIS [None]
